FAERS Safety Report 21304874 (Version 3)
Quarter: 2023Q1

REPORT INFORMATION
  Report Type: Spontaneous
  Country: JP (occurrence: JP)
  Receive Date: 20220907
  Receipt Date: 20230329
  Transmission Date: 20230418
  Serious: Yes (Death, Life-Threatening, Hospitalization, Other)
  Sender: FDA-Public Use
  Company Number: JP-JAZZ-2022-JP-028504

PATIENT
  Age: 19 Year
  Sex: Male
  Weight: 56.5 kg

DRUGS (2)
  1. DEFITELIO [Suspect]
     Active Substance: DEFIBROTIDE SODIUM
     Indication: Venoocclusive liver disease
     Dosage: 25 MILLIGRAM/KILOGRAM, QD
     Route: 042
     Dates: start: 20220804, end: 20220815
  2. NAFAMOSTAT MESYLATE [Suspect]
     Active Substance: NAFAMOSTAT MESYLATE
     Indication: Dialysis
     Dosage: UNK
     Route: 042
     Dates: start: 20220802, end: 20220816

REACTIONS (3)
  - Gastrointestinal haemorrhage [Fatal]
  - Hypotension [Not Recovered/Not Resolved]
  - Bacteroides infection [Unknown]

NARRATIVE: CASE EVENT DATE: 20220814
